FAERS Safety Report 17718990 (Version 7)
Quarter: 2023Q2

REPORT INFORMATION
  Report Type: Spontaneous
  Country: US (occurrence: US)
  Receive Date: 20200428
  Receipt Date: 20230407
  Transmission Date: 20230721
  Serious: Yes (Other)
  Sender: FDA-Public Use
  Company Number: US-GILEAD-2020-0461230

PATIENT
  Age: 39 Year
  Sex: Male
  Weight: 108.86 kg

DRUGS (46)
  1. VIREAD [Suspect]
     Active Substance: TENOFOVIR DISOPROXIL FUMARATE
     Indication: HIV infection
     Dosage: UNK
     Route: 048
     Dates: start: 2005, end: 2019
  2. COMPLERA [Suspect]
     Active Substance: EMTRICITABINE\RILPIVIRINE HYDROCHLORIDE\TENOFOVIR DISOPROXIL FUMARATE
     Indication: HIV infection
     Dosage: UNK
     Route: 048
     Dates: start: 2011
  3. COMPLERA [Suspect]
     Active Substance: EMTRICITABINE\RILPIVIRINE HYDROCHLORIDE\TENOFOVIR DISOPROXIL FUMARATE
     Dosage: UNK
     Route: 048
     Dates: start: 20121215, end: 20130610
  4. COMPLERA [Suspect]
     Active Substance: EMTRICITABINE\RILPIVIRINE HYDROCHLORIDE\TENOFOVIR DISOPROXIL FUMARATE
     Dosage: UNK
     Route: 048
     Dates: start: 201408, end: 201504
  5. ATRIPLA [Suspect]
     Active Substance: EFAVIRENZ\EMTRICITABINE\TENOFOVIR DISOPROXIL FUMARATE
     Indication: HIV infection
     Dosage: UNK
     Route: 048
     Dates: start: 201112, end: 20140808
  6. ATRIPLA [Suspect]
     Active Substance: EFAVIRENZ\EMTRICITABINE\TENOFOVIR DISOPROXIL FUMARATE
     Dosage: UNK
     Route: 048
     Dates: start: 201102, end: 201311
  7. TRUVADA [Suspect]
     Active Substance: EMTRICITABINE\TENOFOVIR DISOPROXIL FUMARATE
     Indication: HIV infection
     Dosage: UNK
     Route: 065
     Dates: start: 20070218, end: 20131213
  8. EDURANT [Concomitant]
     Active Substance: RILPIVIRINE HYDROCHLORIDE
  9. NORVIR [Concomitant]
     Active Substance: RITONAVIR
  10. PREZISTA [Concomitant]
     Active Substance: DARUNAVIR ETHANOLATE
  11. TIVICAY [Concomitant]
     Active Substance: DOLUTEGRAVIR SODIUM
  12. ZIAGEN [Concomitant]
     Active Substance: ABACAVIR SULFATE
  13. ALPRAZOLAM [Concomitant]
     Active Substance: ALPRAZOLAM
  14. ANDROGEL [Concomitant]
     Active Substance: TESTOSTERONE
  15. BUPROPION [Concomitant]
     Active Substance: BUPROPION
  16. ATORVASTATIN [Concomitant]
     Active Substance: ATORVASTATIN
  17. CLONAZEPAM [Concomitant]
     Active Substance: CLONAZEPAM
  18. CRESTOR [Concomitant]
     Active Substance: ROSUVASTATIN CALCIUM
  19. CYCLOBENZAPRINE [Concomitant]
     Active Substance: CYCLOBENZAPRINE
  20. ESCITALOPRAM [Concomitant]
     Active Substance: ESCITALOPRAM OXALATE
  21. EZETIMIBE [Concomitant]
     Active Substance: EZETIMIBE
  22. GABAPENTIN [Concomitant]
     Active Substance: GABAPENTIN
  23. GLIPIZIDE [Concomitant]
     Active Substance: GLIPIZIDE
  24. HYDROCODONE BITARTRATE AND ACETAMINOPHEN [Concomitant]
     Active Substance: ACETAMINOPHEN\HYDROCODONE BITARTRATE
  25. LANTUS [Concomitant]
     Active Substance: INSULIN GLARGINE
  26. LEVOCETIRIZINE [Concomitant]
     Active Substance: LEVOCETIRIZINE
  27. LEVOTHYROXINE [Concomitant]
     Active Substance: LEVOTHYROXINE
  28. LISINOPRIL [Concomitant]
     Active Substance: LISINOPRIL
  29. LITHIUM CARBONATE [Concomitant]
     Active Substance: LITHIUM CARBONATE
  30. OMEPRAZOLE [Concomitant]
     Active Substance: OMEPRAZOLE
  31. PANTOPRAZOLE [Concomitant]
     Active Substance: PANTOPRAZOLE
  32. ALUMINUM HYDROXIDE\MAGNESIUM CARBONATE [Concomitant]
     Active Substance: ALUMINUM HYDROXIDE\MAGNESIUM CARBONATE
  33. SEROQUEL [Concomitant]
     Active Substance: QUETIAPINE FUMARATE
  34. RISPERIDONE [Concomitant]
     Active Substance: RISPERIDONE
  35. RITONAVIR [Concomitant]
     Active Substance: RITONAVIR
  36. RYBELSUS [Concomitant]
     Active Substance: SEMAGLUTIDE
  37. SUCRALFATE [Concomitant]
     Active Substance: SUCRALFATE
  38. SYNTHROID [Concomitant]
     Active Substance: LEVOTHYROXINE SODIUM
  39. TIZANIDINE [Concomitant]
     Active Substance: TIZANIDINE
  40. TRAZODONE [Concomitant]
     Active Substance: TRAZODONE HYDROCHLORIDE
  41. TRESIBA [Concomitant]
     Active Substance: INSULIN DEGLUDEC
  42. VENTOLIN [Concomitant]
     Active Substance: ALBUTEROL SULFATE
  43. VITAMIN D2 [Concomitant]
     Active Substance: ERGOCALCIFEROL
  44. XANAX [Concomitant]
     Active Substance: ALPRAZOLAM
  45. ZETIA [Concomitant]
     Active Substance: EZETIMIBE
  46. ZIPRASIDONE [Concomitant]
     Active Substance: ZIPRASIDONE

REACTIONS (15)
  - Chronic kidney disease [Not Recovered/Not Resolved]
  - Chronic kidney disease [Not Recovered/Not Resolved]
  - Renal failure [Not Recovered/Not Resolved]
  - Glomerular filtration rate abnormal [Unknown]
  - Skeletal injury [Unknown]
  - Anxiety [Not Recovered/Not Resolved]
  - Emotional distress [Not Recovered/Not Resolved]
  - Pain [Not Recovered/Not Resolved]
  - Anhedonia [Not Recovered/Not Resolved]
  - Insomnia [Unknown]
  - Pollakiuria [Unknown]
  - Blood creatinine increased [Unknown]
  - Depression [Unknown]
  - Back pain [Unknown]
  - Nocturia [Unknown]

NARRATIVE: CASE EVENT DATE: 20121001
